FAERS Safety Report 21494697 (Version 1)
Quarter: 2022Q4

REPORT INFORMATION
  Report Type: Spontaneous
  Country: US (occurrence: US)
  Receive Date: 20221021
  Receipt Date: 20221021
  Transmission Date: 20230113
  Serious: No
  Sender: FDA-Public Use
  Company Number: US-CELLTRION INC.-2022US008144

PATIENT

DRUGS (2)
  1. INFLECTRA [Suspect]
     Active Substance: INFLIXIMAB-DYYB
     Indication: Product used for unknown indication
     Dosage: 5 MG/KG = 400MG FREQUENCY: EVERY 8 WKS QUANTITY 4 REFILLS: 5
  2. RITUXIMAB [Concomitant]
     Active Substance: RITUXIMAB
     Indication: Product used for unknown indication
     Dosage: 5 MG/KG = 400MG FREQUENCY: EVERY 8 WKS QUANTITY 4 REFILLS: 5

REACTIONS (1)
  - Product selection error [Unknown]
